FAERS Safety Report 9124036 (Version 1)
Quarter: 2013Q1

REPORT INFORMATION
  Report Type: Spontaneous
  Country: US (occurrence: US)
  Receive Date: 20130227
  Receipt Date: 20130227
  Transmission Date: 20140127
  Serious: No
  Sender: FDA-Public Use
  Company Number: US-TEVA-388763USA

PATIENT
  Age: 76 Year
  Sex: Female
  Weight: 86.26 kg

DRUGS (10)
  1. NUVIGIL [Suspect]
     Route: 048
  2. SULFAMETHOXAZOLE\TRIMETHOPRIM [Suspect]
     Indication: CYSTITIS
     Route: 048
     Dates: start: 20130215, end: 20130217
  3. LISINOPRIL/HCTZ [Concomitant]
     Indication: HYPERTENSION
     Dosage: 1 DOSAGE FORMS DAILY; 20 MG/25MG
     Route: 048
  4. SYNTHROID [Concomitant]
     Indication: HYPOTHYROIDISM
     Dosage: 125 MICROGRAM DAILY;
     Route: 048
  5. ACIPHEX [Concomitant]
     Indication: GASTROOESOPHAGEAL REFLUX DISEASE
     Dosage: 20 MILLIGRAM DAILY;
     Route: 048
  6. VOLTAREN [Concomitant]
     Dosage: 75 MILLIGRAM DAILY;
     Route: 048
  7. PRAVASTATIN [Concomitant]
     Indication: BLOOD CHOLESTEROL INCREASED
     Dosage: 40 MILLIGRAM DAILY;
     Route: 048
  8. GABAPENTIN [Concomitant]
     Dosage: 600 MILLIGRAM DAILY;
     Route: 048
  9. ULTRAM [Concomitant]
     Dosage: 200 MILLIGRAM DAILY;
     Route: 048
  10. HYDROXYZINE [Concomitant]
     Indication: PRURITUS
     Route: 048
     Dates: start: 20130217, end: 20130223

REACTIONS (3)
  - Cystitis [Unknown]
  - Pruritus [Recovered/Resolved]
  - Blood cholesterol increased [Not Recovered/Not Resolved]
